FAERS Safety Report 19820742 (Version 1)
Quarter: 2021Q3

REPORT INFORMATION
  Report Type: Spontaneous
  Country: US (occurrence: US)
  Receive Date: 20210912
  Receipt Date: 20210912
  Transmission Date: 20211014
  Serious: No
  Sender: FDA-Public Use
  Company Number: None

PATIENT
  Age: 53 Year
  Sex: Female
  Weight: 49.5 kg

DRUGS (8)
  1. FLUDROCORTISONE [Concomitant]
     Active Substance: FLUDROCORTISONE
  2. IBUPROFEN. [Concomitant]
     Active Substance: IBUPROFEN
  3. LICORICE. [Concomitant]
     Active Substance: LICORICE
  4. CLONAZEPAM. [Concomitant]
     Active Substance: CLONAZEPAM
  5. VANDAZOLE [Suspect]
     Active Substance: METRONIDAZOLE
     Indication: BACTERIAL VAGINOSIS
     Dosage: ?          QUANTITY:1 APPLICATOR;?
     Route: 067
     Dates: start: 20210812, end: 20210815
  6. VISTARIL [Concomitant]
     Active Substance: HYDROXYZINE PAMOATE
  7. VITAMIN B?COMPLEX [Concomitant]
     Active Substance: DEXPANTHENOL\NIACINAMIDE\PYRIDOXINE HYDROCHLORIDE\RIBOFLAVIN 5^-PHOSPHATE SODIUM\THIAMINE HYDROCHLORIDE
  8. VIT D [Concomitant]
     Active Substance: VITAMIN D NOS

REACTIONS (2)
  - Vulvovaginal pain [None]
  - Vulvitis [None]

NARRATIVE: CASE EVENT DATE: 20210816
